FAERS Safety Report 5182778-5 (Version None)
Quarter: 2006Q4

REPORT INFORMATION
  Report Type: 
  Country: None (occurrence: None)
  Receive Date: 20061220
  Receipt Date: 20051114
  Transmission Date: 20070319
  Serious: No
  Sender: FDA-Public Use
  Company Number: US-GLAXOSMITHKLINE-A0582117A

PATIENT
  Age: 45 Year
  Sex: Female

DRUGS (8)
  1. NICODERM CQ [Suspect]
  2. NICODERM CQ [Suspect]
  3. PLAQUENIL [Concomitant]
  4. PERCOCET [Concomitant]
  5. INH [Concomitant]
  6. ULTRAM [Concomitant]
  7. METHADONE HCL [Concomitant]
  8. VALIUM [Concomitant]

REACTIONS (1)
  - APPLICATION SITE BRUISING [None]
